FAERS Safety Report 9676766 (Version 2)
Quarter: 2013Q4

REPORT INFORMATION
  Report Type: Spontaneous
  Country: US (occurrence: US)
  Receive Date: 20131107
  Receipt Date: 20131107
  Transmission Date: 20140711
  Serious: No
  Sender: FDA-Public Use
  Company Number: US-BAXTER-2013BAX008163

PATIENT
  Age: 34 Year
  Sex: Female

DRUGS (4)
  1. DIANEAL LOW CALCIUM [Suspect]
     Indication: PERITONEAL DIALYSIS
     Route: 033
     Dates: start: 20130219, end: 20130228
  2. DIANEAL LOW CALCIUM [Suspect]
     Route: 033
     Dates: start: 20130228
  3. DIANEAL LOW CALCIUM (ULTRABAG) [Suspect]
     Indication: PERITONEAL DIALYSIS
     Route: 033
  4. DIANEAL LOW CALCIUM (ULTRABAG) [Suspect]
     Route: 033

REACTIONS (4)
  - Pain in extremity [Recovered/Resolved]
  - Discomfort [Recovered/Resolved]
  - Abdominal pain upper [Recovered/Resolved]
  - Procedural pain [Not Recovered/Not Resolved]
